FAERS Safety Report 22721001 (Version 2)
Quarter: 2024Q3

REPORT INFORMATION
  Report Type: Spontaneous
  Country: US (occurrence: US)
  Receive Date: 20230719
  Receipt Date: 20240723
  Transmission Date: 20241016
  Serious: No
  Sender: OTSUKA
  Company Number: US-OTSUKA-2022_050918

PATIENT
  Sex: Female
  Weight: 72.57 kg

DRUGS (3)
  1. REXULTI [Suspect]
     Active Substance: BREXPIPRAZOLE
     Indication: Depression
     Dosage: 6 MG, QD (TWO 3MG TABLETS (6MG TOTAL), EVERY MORNING)
     Route: 048
  2. DULOXETINE [Concomitant]
     Active Substance: DULOXETINE
     Indication: Antidepressant therapy
     Dosage: 60 MG
     Route: 065
  3. SINGULAIR [Concomitant]
     Active Substance: MONTELUKAST SODIUM
     Indication: Hypersensitivity
     Dosage: UNK
     Route: 065

REACTIONS (7)
  - Depressed mood [Unknown]
  - Body height decreased [Unknown]
  - Irritability [Unknown]
  - Weight increased [Unknown]
  - Insurance issue [Unknown]
  - Product dose omission issue [Unknown]
  - Overdose [Unknown]
